FAERS Safety Report 16087798 (Version 1)
Quarter: 2019Q1

REPORT INFORMATION
  Report Type: Spontaneous
  Country: JP (occurrence: JP)
  Receive Date: 20190319
  Receipt Date: 20190319
  Transmission Date: 20190418
  Serious: Yes (Other)
  Sender: FDA-Public Use
  Company Number: JP-SAKK-2019SA067586AA

PATIENT
  Sex: Male

DRUGS (3)
  1. JEVTANA [Suspect]
     Active Substance: CABAZITAXEL
     Dosage: 20 MG/M2
     Route: 041
  2. JEVTANA [Suspect]
     Active Substance: CABAZITAXEL
     Dosage: 20 MG/M2
     Route: 041
  3. JEVTANA [Suspect]
     Active Substance: CABAZITAXEL
     Indication: PROSTATE CANCER
     Dosage: 25 MG/M2
     Route: 041
     Dates: start: 20181213

REACTIONS (3)
  - Febrile neutropenia [Recovered/Resolved]
  - Sudden hearing loss [Not Recovered/Not Resolved]
  - Febrile neutropenia [Recovered/Resolved]

NARRATIVE: CASE EVENT DATE: 20181220
